FAERS Safety Report 12818373 (Version 1)
Quarter: 2016Q4

REPORT INFORMATION
  Report Type: Spontaneous
  Country: TR (occurrence: TR)
  Receive Date: 20161005
  Receipt Date: 20161005
  Transmission Date: 20170207
  Serious: Yes (Other)
  Sender: FDA-Public Use
  Company Number: TR-MYLANLABS-2016M1042806

PATIENT

DRUGS (8)
  1. ETHAMBUTOL [Suspect]
     Active Substance: ETHAMBUTOL HYDROCHLORIDE
     Indication: TUBERCULOSIS
     Dosage: 25 MG/KG/DAY
     Route: 065
  2. METHYLPREDNISOLONE. [Interacting]
     Active Substance: METHYLPREDNISOLONE
     Indication: TUBERCULOSIS
     Dosage: 1 MG/KG, 72MG
     Route: 048
  3. PYRAZINAMIDE. [Suspect]
     Active Substance: PYRAZINAMIDE
     Indication: TUBERCULOSIS
     Dosage: 30 MG/KG/DAY
     Route: 065
  4. RIFAMPICIN [Suspect]
     Active Substance: RIFAMPIN
     Dosage: IN A 2DRUG REGIMEN.
     Route: 065
  5. RIFAMPICIN [Suspect]
     Active Substance: RIFAMPIN
     Indication: TUBERCULOSIS
     Dosage: 600 MG/DAY, 2MONTHS OF 4DRUG REGIMEN THEN CHANGED TO 10MONTHS OF 2DRUG REGIMEN.
     Route: 065
  6. ISONIAZID. [Suspect]
     Active Substance: ISONIAZID
     Indication: TUBERCULOSIS
     Dosage: 300 MG/DAY, 2MONTHS OF 4DRUG REGIMEN THEN CHANGED TO 10MONTHS OF 2DRUG REGIMEN.
     Route: 065
  7. ISONIAZID. [Suspect]
     Active Substance: ISONIAZID
     Dosage: UNK
     Route: 065
  8. METHYLPREDNISOLONE. [Interacting]
     Active Substance: METHYLPREDNISOLONE
     Dosage: 24 MG, QD
     Route: 048

REACTIONS (3)
  - Paradoxical drug reaction [Recovering/Resolving]
  - Choroiditis [Recovering/Resolving]
  - Drug interaction [Recovering/Resolving]
